FAERS Safety Report 18701146 (Version 1)
Quarter: 2021Q1

REPORT INFORMATION
  Report Type: Spontaneous
  Country: US (occurrence: US)
  Receive Date: 20210105
  Receipt Date: 20210105
  Transmission Date: 20210419
  Serious: Yes (Other)
  Sender: FDA-Public Use
  Company Number: US-MYLANLABS-2020M1106854

PATIENT
  Sex: Female
  Weight: 48 kg

DRUGS (5)
  1. OCTREOTIDE ACETATE INJECTION [Suspect]
     Active Substance: OCTREOTIDE ACETATE
     Indication: CARCINOID TUMOUR
     Dosage: 100 MICROGRAM, QD
     Route: 058
  2. OCTREOTIDE ACETATE INJECTION [Suspect]
     Active Substance: OCTREOTIDE ACETATE
     Indication: ABDOMINAL DISTENSION
  3. SANDOSTATIN LAR DEPOT [Concomitant]
     Active Substance: OCTREOTIDE ACETATE
     Dosage: UNK
  4. EVEROLIMUS. [Concomitant]
     Active Substance: EVEROLIMUS
     Dosage: UNK
  5. OCTREOTIDE ACETATE INJECTION [Suspect]
     Active Substance: OCTREOTIDE ACETATE
     Indication: DIARRHOEA

REACTIONS (5)
  - Abdominal pain [Not Recovered/Not Resolved]
  - Drug ineffective [Not Recovered/Not Resolved]
  - Injection site scar [Not Recovered/Not Resolved]
  - Cholelithiasis [Not Recovered/Not Resolved]
  - Weight decreased [Not Recovered/Not Resolved]
